FAERS Safety Report 10082183 (Version 4)
Quarter: 2014Q2

REPORT INFORMATION
  Report Type: Report from Study
  Country: US (occurrence: US)
  Receive Date: 20140416
  Receipt Date: 20140606
  Transmission Date: 20141212
  Serious: Yes (Life-Threatening, Hospitalization)
  Sender: FDA-Public Use
  Company Number: US-SA-2014SA032096

PATIENT
  Age: 49 Year
  Sex: Male
  Weight: 110.67 kg

DRUGS (29)
  1. ALEMTUZUMAB [Suspect]
     Indication: MULTIPLE SCLEROSIS
     Route: 042
     Dates: start: 20110214, end: 20110218
  2. ALEMTUZUMAB [Suspect]
     Indication: MULTIPLE SCLEROSIS
     Route: 042
     Dates: start: 20120213, end: 20120215
  3. RESTORIL [Concomitant]
     Route: 048
     Dates: start: 20140311
  4. ZOFRAN [Concomitant]
     Dosage: IV PUSH, FOR NAUSEA AND VOMITTING DOSE:2 MILLIGRAM(S)/MILLILITRE
     Route: 042
     Dates: start: 20140310
  5. ENOXAPARIN [Concomitant]
     Route: 058
     Dates: start: 20140310
  6. TYLENOL [Concomitant]
     Route: 048
     Dates: start: 20140311
  7. TYLENOL [Concomitant]
     Route: 054
     Dates: start: 20140311
  8. ALBUTEROL [Concomitant]
     Dosage: 2.5-0.5 MG/3 ML
  9. ERTAPENEM [Concomitant]
  10. HEPARIN [Concomitant]
     Route: 058
  11. LIDOCAINE [Concomitant]
     Dosage: DOSE:10 MILLIGRAM(S)/MILLILITRE
  12. NALOXONE [Concomitant]
     Dosage: Q 3 MIN
  13. METHYLPREDNISOLONE [Concomitant]
     Route: 042
     Dates: start: 20110214, end: 20110216
  14. METHYLPREDNISOLONE [Concomitant]
     Route: 042
     Dates: start: 20120213, end: 20120215
  15. ONDANSETRON [Concomitant]
     Route: 042
  16. VALIUM [Concomitant]
  17. HYDROCHLOROTHIAZIDE/LISINOPRIL [Concomitant]
     Dosage: DOSE: 12.5-20 MG
  18. MORPHINE [Concomitant]
  19. DIPHENHYDRAMINE [Concomitant]
     Route: 042
     Dates: start: 20140311
  20. ANAESTHETICS, GENERAL [Concomitant]
     Dates: start: 20140312, end: 20140312
  21. DILAUDID [Concomitant]
     Indication: PAIN
     Dosage: SLOW IV PUSH DOSE:1 MILLIGRAM(S)/MILLILITRE
     Route: 042
     Dates: start: 20140312
  22. NORMAL SALINE [Concomitant]
     Route: 042
     Dates: start: 20140311
  23. VANCOMYCIN [Concomitant]
     Route: 042
     Dates: start: 20140312
  24. PANTOPRAZOLE [Concomitant]
     Route: 042
  25. PROMETHAZINE [Concomitant]
     Dosage: DOSE:25 MILLIGRAM(S)/MILLILITRE
     Route: 042
  26. LASIX [Concomitant]
     Dates: start: 20140314
  27. NARCAN [Concomitant]
     Indication: RESPIRATORY DISTRESS
     Dosage: DOSE:0.4 MILLIGRAM(S)/MILLILITRE
     Route: 042
     Dates: start: 20140312
  28. ATROVENT [Concomitant]
     Dosage: DOSE: 2.5 ML/2.5 ML?NEBULIZER
     Dates: start: 20140316
  29. INSULIN [Concomitant]

REACTIONS (8)
  - Castleman^s disease [Not Recovered/Not Resolved]
  - Dehydration [Not Recovered/Not Resolved]
  - Colitis ischaemic [Unknown]
  - Sepsis [Not Recovered/Not Resolved]
  - Cardiac arrest [Unknown]
  - Pneumonia aspiration [Unknown]
  - Renal tubular necrosis [Not Recovered/Not Resolved]
  - Ileostomy [Recovered/Resolved]
